FAERS Safety Report 9073166 (Version 1)
Quarter: 2013Q1

REPORT INFORMATION
  Report Type: Spontaneous
  Country: ES (occurrence: ES)
  Receive Date: 20130129
  Receipt Date: 20130129
  Transmission Date: 20140127
  Serious: Yes (Life-Threatening, Hospitalization)
  Sender: FDA-Public Use
  Company Number: ES-CELGENEUS-144-21660-13013176

PATIENT
  Age: 42 Year
  Sex: Female

DRUGS (2)
  1. ABRAXANE [Suspect]
     Indication: BREAST CANCER METASTATIC
     Dosage: 220 MILLIGRAM
     Route: 065
     Dates: start: 20130110, end: 20130110
  2. TRASTUZUMAB [Suspect]
     Indication: BREAST CANCER METASTATIC
     Route: 065
     Dates: start: 20130110

REACTIONS (2)
  - Bone marrow failure [Not Recovered/Not Resolved]
  - Acute hepatic failure [Not Recovered/Not Resolved]
